FAERS Safety Report 8140347-9 (Version None)
Quarter: 2012Q1

REPORT INFORMATION
  Report Type: 
  Country: None (occurrence: None)
  Receive Date: 20120216
  Receipt Date: 20120208
  Transmission Date: 20120608
  Serious: No
  Sender: FDA-Public Use
  Company Number: US-PFIZER INC-2012036841

PATIENT
  Sex: Female
  Weight: 58.957 kg

DRUGS (2)
  1. NORGESTREL AND ETHINYL ESTRADIOL [Suspect]
     Indication: MENSTRUAL CYCLE MANAGEMENT
  2. NORGESTREL AND ETHINYL ESTRADIOL [Suspect]
     Indication: OFF LABEL USE
     Dosage: UNK
     Dates: end: 20120201

REACTIONS (1)
  - METRORRHAGIA [None]
